FAERS Safety Report 6787897-5 (Version None)
Quarter: 2010Q2

REPORT INFORMATION
  Report Type: 
  Country: None (occurrence: None)
  Receive Date: 20100623
  Receipt Date: 20071018
  Transmission Date: 20101027
  Serious: Yes (Other)
  Sender: FDA-Public Use
  Company Number: US-PFIZER INC-2007074233

PATIENT
  Sex: Female
  Weight: 73 kg

DRUGS (5)
  1. DEPO-SUBQ PROVERA 104 [Suspect]
     Indication: CONTRACEPTION
     Dosage: 1ST INJECTION/13 WEEKS
     Route: 058
     Dates: start: 20050809, end: 20050809
  2. DEPO-SUBQ PROVERA 104 [Suspect]
     Dosage: MOST RECENT INJECTION/13 WEEKS
     Route: 058
     Dates: start: 20070501, end: 20070501
  3. MACROBID [Concomitant]
     Dates: start: 20060117
  4. DIFLUCAN [Concomitant]
     Dates: start: 20060201
  5. AMOXICILLIN [Concomitant]
     Dates: start: 20061124

REACTIONS (1)
  - INJECTION SITE REACTION [None]
